FAERS Safety Report 4890921-8 (Version None)
Quarter: 2005Q4

REPORT INFORMATION
  Report Type: 
  Country: None (occurrence: None)
  Receive Date: 20051220
  Receipt Date: 20051110
  Transmission Date: 20060501
  Serious: Yes (Other)
  Sender: FDA-Public Use
  Company Number: 424655

PATIENT
  Age: 54 Year
  Sex: Female

DRUGS (3)
  1. BONIVA [Suspect]
     Dosage: ORAL
     Route: 048
  2. ASPIRIN [Concomitant]
  3. VITAMIN E (ALPHA-TOCOPHEROL) [Concomitant]

REACTIONS (3)
  - INFLUENZA LIKE ILLNESS [None]
  - PRURITUS [None]
  - URTICARIA [None]
